FAERS Safety Report 24680533 (Version 1)
Quarter: 2024Q4

REPORT INFORMATION
  Report Type: Spontaneous
  Country: IN (occurrence: IN)
  Receive Date: 20241129
  Receipt Date: 20241129
  Transmission Date: 20250115
  Serious: Yes (Hospitalization)
  Sender: PFIZER
  Company Number: IN-PFIZER INC-PV202400119190

PATIENT
  Age: 48 Year
  Sex: Female

DRUGS (23)
  1. LORLATINIB [Suspect]
     Active Substance: LORLATINIB
     Indication: Lung neoplasm malignant
     Dosage: 100 MG, 1X/DAY (OD FOR 1 MONTH)
     Route: 048
     Dates: start: 20240806, end: 20241105
  2. ZOLASTA [Concomitant]
     Dosage: 4 MG IN 100 ML NS OVER 30 MIN STAT IN DAY CARE
  3. PANTOPRAZOLE SODIUM [Concomitant]
     Active Substance: PANTOPRAZOLE SODIUM
     Dosage: UNK, 1X/DAY, (SOS (BBF))
  4. CALCIUM\CHOLECALCIFEROL [Concomitant]
     Active Substance: CALCIUM\CHOLECALCIFEROL
     Dosage: 500 MG, 1X/DAY (FOR 1 MONTH)
  5. MOUTH WASH [Concomitant]
     Dosage: UNK, 4X/DAY (QID)
  6. PLENTY [Concomitant]
     Dosage: UNK
  7. ROSUVASTATIN CALCIUM [Concomitant]
     Active Substance: ROSUVASTATIN CALCIUM
     Dosage: 10 MG, 1X/DAY (AT NIGHT X 2 MONTHS)
  8. CHOLECALCIFEROL [Concomitant]
     Active Substance: CHOLECALCIFEROL
     Dosage: 60000 IU, WEEKLY (SACHETS FOR 8 WEEKS ( TILL MID OCTOBER))
  9. METHYLCOBALAMIN [Concomitant]
     Active Substance: METHYLCOBALAMIN
     Dosage: UNK, 1X/DAY (FOR 1 WEEK)
  10. OXCARBAZEPINE [Concomitant]
     Active Substance: OXCARBAZEPINE
     Dosage: 150 MG, 1X/DAY
  11. MELZAP [Concomitant]
     Dosage: 0.25 MG, 1X/DAY (1 TAB ONCE A DAY HS AS PER NEUROLOGIST, MD)
  12. LEVOTHYROXINE [Concomitant]
     Active Substance: LEVOTHYROXINE
     Dosage: 100 UG, 1X/DAY (BBF, WITHOLD TILL ENDOCRONOLIOGST REVEIW)
  13. TELMA H [Concomitant]
     Dosage: 1 DF, 1X/DAY (12.5/40MG 1 TAB)
  14. LEVETIRACETAM [Concomitant]
     Active Substance: LEVETIRACETAM
     Dosage: 500 MG, 2X/DAY
  15. CREMAFFIN [Concomitant]
     Indication: Constipation
     Dosage: UNK, AS NEEDED (2 TSF HS/SOS)
  16. BISACODYL [Concomitant]
     Active Substance: BISACODYL
     Indication: Constipation
     Dosage: 2 DF, AS NEEDED (HS/SOS)
  17. LOOZ [Concomitant]
     Indication: Constipation
     Dosage: 20 ML, AS NEEDED  (HS/SOS)
  18. OPTINEURON [CALCIUM PANTOTHENATE;CYANOCOBALAMIN;NICOTINAMIDE;PYRIDOXIN [Concomitant]
     Dosage: 1 AMP IN 100 ML NS IV OVER 30 MIN STAT
     Route: 042
  19. CCM [CALCIUM CARBONATE] [Concomitant]
     Dosage: UNK, 1X/DAY (ONCE A DAY X 1 MONTH)
  20. LASIX [Concomitant]
     Active Substance: FUROSEMIDE
     Dosage: 10 MG, 1X/DAY (ONCE A DAY (MORNING HOURS) X 5 DAYS AND THEN SOS)
  21. ME 12 [Concomitant]
     Dosage: UNK, 1X/DAY (X 1 MONTH)
  22. THYROXINE [Concomitant]
     Active Substance: LEVOTHYROXINE
     Dosage: UNK (TO HOLD)
  23. NAPROXEN [Concomitant]
     Active Substance: NAPROXEN
     Dosage: 250 MG, AS NEEDED

REACTIONS (4)
  - Pulmonary embolism [Unknown]
  - Thyroid disorder [Unknown]
  - Pain [Unknown]
  - Neoplasm progression [Unknown]
